APPROVED DRUG PRODUCT: KAYEXALATE
Active Ingredient: SODIUM POLYSTYRENE SULFONATE
Strength: 453.6GM/BOT **Federal Register determination that product was not discontinued or withdrawn for safety or effectiveness reasons**
Dosage Form/Route: POWDER;ORAL, RECTAL
Application: N011287 | Product #001
Applicant: CONCORDIA PHARMACEUTICALS INC
Approved: Approved Prior to Jan 1, 1982 | RLD: Yes | RS: No | Type: DISCN